FAERS Safety Report 4463040-2 (Version None)
Quarter: 2004Q3

REPORT INFORMATION
  Report Type: 
  Country: None (occurrence: None)
  Receive Date: 20040928
  Receipt Date: 20040915
  Transmission Date: 20050211
  Serious: Yes (Hospitalization)
  Sender: FDA-Public Use
  Company Number: BLOC000829

PATIENT

DRUGS (1)
  1. BOTULINUM TOXIN TYPE B (BOTULINUM TOXIN TYPE B) [Suspect]
     Indication: DYSTONIA
     Dosage: 13600 U INTRAMUSCULAR
     Route: 030

REACTIONS (2)
  - DYSPHAGIA [None]
  - HYPOTONIA [None]
